FAERS Safety Report 24228025 (Version 1)
Quarter: 2024Q3

REPORT INFORMATION
  Report Type: Spontaneous
  Country: US (occurrence: None)
  Receive Date: 20240819
  Receipt Date: 20240819
  Transmission Date: 20241017
  Serious: Yes (Death, Life-Threatening, Hospitalization, Other)
  Sender: Public
  Company Number: None

PATIENT
  Age: 41 Year
  Sex: Female
  Weight: 77.11 kg

DRUGS (1)
  1. REXULTI [Suspect]
     Active Substance: BREXPIPRAZOLE
     Indication: Depression
     Dates: start: 20210905, end: 20210906

REACTIONS (4)
  - Road traffic accident [None]
  - Alcohol use [None]
  - Loss of consciousness [None]
  - Dopamine dysregulation syndrome [None]

NARRATIVE: CASE EVENT DATE: 20210905
